FAERS Safety Report 12083064 (Version 1)
Quarter: 2016Q1

REPORT INFORMATION
  Report Type: Report from Study
  Country: BR (occurrence: BR)
  Receive Date: 20160217
  Receipt Date: 20160217
  Transmission Date: 20160526
  Serious: Yes (Life-Threatening)
  Sender: FDA-Public Use
  Company Number: BR-NOVOPROD-339131

PATIENT
  Age: 75 Year
  Sex: Male
  Weight: 71.5 kg

DRUGS (2)
  1. INSULATARD HM [Suspect]
     Active Substance: INSULIN HUMAN
     Dosage: 30 IU, QD
     Dates: start: 201106, end: 20121226
  2. LIRAGLUTIDE FLEXPEN [Suspect]
     Active Substance: LIRAGLUTIDE
     Indication: TYPE 2 DIABETES MELLITUS
     Dosage: 0.6 MG, QD
     Route: 058
     Dates: start: 20110929

REACTIONS (1)
  - Hypoglycaemic seizure [Recovered/Resolved]

NARRATIVE: CASE EVENT DATE: 20111002
